FAERS Safety Report 9538284 (Version 2)
Quarter: 2013Q3

REPORT INFORMATION
  Report Type: Spontaneous
  Country: CN (occurrence: CN)
  Receive Date: 20130920
  Receipt Date: 20130920
  Transmission Date: 20140515
  Serious: Yes (Other)
  Sender: FDA-Public Use
  Company Number: CN-ROCHE-1242214

PATIENT
  Age: 70 Year
  Sex: Female
  Weight: 50.2 kg

DRUGS (3)
  1. XELODA [Suspect]
     Indication: PANCREATIC CARCINOMA
     Route: 048
     Dates: start: 20130621
  2. TARCEVA [Suspect]
     Indication: PANCREATIC CARCINOMA
     Route: 048
     Dates: start: 20130621
  3. TEGAFUR [Concomitant]
     Indication: PANCREATIC CARCINOMA
     Route: 048
     Dates: start: 20130621

REACTIONS (5)
  - Metastases to liver [Not Recovered/Not Resolved]
  - Vein disorder [Not Recovered/Not Resolved]
  - Rash [Recovering/Resolving]
  - Decreased appetite [Not Recovered/Not Resolved]
  - Pruritus [Not Recovered/Not Resolved]
